FAERS Safety Report 9206764 (Version 1)
Quarter: 2013Q2

REPORT INFORMATION
  Report Type: Spontaneous
  Country: US (occurrence: None)
  Receive Date: 20130401
  Receipt Date: 20130401
  Transmission Date: 20140414
  Serious: Yes (Hospitalization)
  Sender: FDA-Public Use
  Company Number: None

PATIENT
  Age: 38 Year
  Sex: Female

DRUGS (2)
  1. EXJADE 500MG NOVARTIS [Suspect]
     Route: 048
     Dates: start: 20120620, end: 20130322
  2. EXJADE 500MG NOVARTIS [Suspect]
     Route: 048
     Dates: start: 20120620, end: 20130322

REACTIONS (2)
  - Dehydration [None]
  - Diarrhoea [None]
